FAERS Safety Report 11253634 (Version 1)
Quarter: 2015Q3

REPORT INFORMATION
  Report Type: Spontaneous
  Country: FR (occurrence: FR)
  Receive Date: 20150709
  Receipt Date: 20150709
  Transmission Date: 20151125
  Serious: Yes (Hospitalization)
  Sender: FDA-Public Use
  Company Number: FR-ROCHE-1604018

PATIENT
  Age: 76 Year
  Sex: Male

DRUGS (11)
  1. ALDACTONE [Concomitant]
     Active Substance: SPIRONOLACTONE
  2. CREON [Concomitant]
     Active Substance: PANCRELIPASE AMYLASE\PANCRELIPASE LIPASE\PANCRELIPASE PROTEASE
  3. AVASTIN [Suspect]
     Active Substance: BEVACIZUMAB
     Indication: INSULINOMA
     Route: 041
     Dates: start: 201405, end: 20150518
  4. LEVOTHYROX [Concomitant]
     Active Substance: LEVOTHYROXINE
  5. SOTALOL. [Concomitant]
     Active Substance: SOTALOL
  6. PANTOPRAZOLE [Concomitant]
     Active Substance: PANTOPRAZOLE SODIUM
  7. ALPRAZOLAM. [Concomitant]
     Active Substance: ALPRAZOLAM
  8. SIGNIFOR [Suspect]
     Active Substance: PASIREOTIDE
     Indication: INSULINOMA
     Route: 048
     Dates: start: 20150601, end: 20150611
  9. TEMODAL [Suspect]
     Active Substance: TEMOZOLOMIDE
     Indication: INSULINOMA
     Route: 065
     Dates: start: 201405, end: 20150518
  10. PROGLICEM [Suspect]
     Active Substance: DIAZOXIDE
     Indication: INSULINOMA
     Route: 048
     Dates: start: 20150501, end: 20150616
  11. IXEL [Concomitant]
     Active Substance: MILNACIPRAN HYDROCHLORIDE

REACTIONS (2)
  - Thrombocytopenia [Not Recovered/Not Resolved]
  - Acute prerenal failure [Not Recovered/Not Resolved]

NARRATIVE: CASE EVENT DATE: 20150611
